FAERS Safety Report 8736354 (Version 9)
Quarter: 2013Q2

REPORT INFORMATION
  Report Type: Spontaneous
  Country: CA (occurrence: CA)
  Receive Date: 20120822
  Receipt Date: 20130503
  Transmission Date: 20140414
  Serious: Yes (Other)
  Sender: FDA-Public Use
  Company Number: CA-ROCHE-1023790

PATIENT
  Age: 40 Year
  Sex: Male

DRUGS (10)
  1. XOLAIR [Suspect]
     Indication: ASTHMA
     Route: 058
     Dates: start: 20110906
  2. XOLAIR [Suspect]
     Route: 058
     Dates: start: 20120411
  3. XOLAIR [Suspect]
     Route: 065
     Dates: start: 20121206
  4. XOLAIR [Suspect]
     Route: 065
     Dates: start: 20130212
  5. XOLAIR [Suspect]
     Route: 065
     Dates: start: 20130326
  6. XOLAIR [Suspect]
     Route: 065
     Dates: start: 20130422
  7. SPIRIVA [Concomitant]
  8. VENTOLIN [Concomitant]
  9. PREDNISONE [Concomitant]
  10. SYMBICORT [Concomitant]

REACTIONS (14)
  - Wrist fracture [Unknown]
  - Blood pressure increased [Unknown]
  - Dyspnoea [Unknown]
  - Heart rate increased [Unknown]
  - Productive cough [Recovering/Resolving]
  - Malaise [Unknown]
  - Fatigue [Unknown]
  - Nasopharyngitis [Recovering/Resolving]
  - Lower respiratory tract infection [Unknown]
  - Discomfort [Unknown]
  - Obstructive airways disorder [Unknown]
  - Rhonchi [Unknown]
  - Fall [Unknown]
  - Wheezing [Not Recovered/Not Resolved]
